FAERS Safety Report 19162206 (Version 1)
Quarter: 2021Q2

REPORT INFORMATION
  Report Type: Spontaneous
  Country: US (occurrence: US)
  Receive Date: 20210421
  Receipt Date: 20210421
  Transmission Date: 20210717
  Serious: Yes (Other)
  Sender: FDA-Public Use
  Company Number: US-ALIMERA SCIENCES LIMITED-US-A16013-21-000059

PATIENT

DRUGS (4)
  1. ILUVIEN [Suspect]
     Active Substance: FLUOCINOLONE ACETONIDE
     Indication: DIABETIC RETINAL OEDEMA
     Dosage: 0.25 MICROGRAM, QD ? LEFT EYE
     Route: 031
     Dates: start: 20160602
  2. ILUVIEN [Suspect]
     Active Substance: FLUOCINOLONE ACETONIDE
     Dosage: 0.25 MICROGRAM, QD ? LEFT EYE
     Route: 031
     Dates: start: 20190404
  3. ILUVIEN [Suspect]
     Active Substance: FLUOCINOLONE ACETONIDE
     Dosage: 0.25 MICROGRAM, QD ? RIGHT EYE
     Route: 031
     Dates: start: 20190411
  4. ILUVIEN [Suspect]
     Active Substance: FLUOCINOLONE ACETONIDE
     Dosage: 0.25 MICROGRAM, QD ? RIGHT EYE
     Route: 031
     Dates: start: 20160609

REACTIONS (1)
  - Intraocular pressure increased [Unknown]
